FAERS Safety Report 10637918 (Version 1)
Quarter: 2014Q4

REPORT INFORMATION
  Report Type: Spontaneous
  Country: IT (occurrence: IT)
  Receive Date: 20141208
  Receipt Date: 20141208
  Transmission Date: 20150529
  Serious: Yes (Other)
  Sender: FDA-Public Use
  Company Number: IT-PFIZER INC-2014331613

PATIENT
  Age: 6 Day
  Sex: Female
  Weight: 1 kg

DRUGS (3)
  1. PEYONA [Concomitant]
     Indication: APNOEA NEONATAL
     Dosage: 5 MG/KG, UNK
     Dates: start: 20130625, end: 20130707
  2. DIFLUCAN [Suspect]
     Active Substance: FLUCONAZOLE
     Indication: APNOEA NEONATAL
     Dosage: 3 MG, DAILY
     Route: 042
     Dates: start: 20130628, end: 20130703
  3. AMPLITAL [Suspect]
     Active Substance: AMPICILLIN
     Indication: ANTIBIOTIC PROPHYLAXIS
     Dosage: 70 MG, DAILY
     Route: 042
     Dates: start: 20130624, end: 20130705

REACTIONS (1)
  - Anaemia [Recovered/Resolved]

NARRATIVE: CASE EVENT DATE: 20130629
